FAERS Safety Report 18735902 (Version 1)
Quarter: 2021Q1

REPORT INFORMATION
  Report Type: Spontaneous
  Country: US (occurrence: US)
  Receive Date: 20210113
  Receipt Date: 20210113
  Transmission Date: 20210419
  Serious: Yes (Hospitalization)
  Sender: FDA-Public Use
  Company Number: None

PATIENT
  Age: 73 Year
  Sex: Male
  Weight: 85.5 kg

DRUGS (9)
  1. ACETAMINOPHEN. [Concomitant]
     Active Substance: ACETAMINOPHEN
     Dates: start: 20210112
  2. BAMLANIVIMAB. [Suspect]
     Active Substance: BAMLANIVIMAB
     Indication: COVID-19
     Dosage: ?          OTHER FREQUENCY:ONCE;?
     Route: 042
     Dates: start: 20210112, end: 20210112
  3. LORATADINE. [Concomitant]
     Active Substance: LORATADINE
     Dates: start: 20210112
  4. DECADRON [Concomitant]
     Active Substance: DEXAMETHASONE
     Dates: start: 20210112
  5. ENOXAPARIN [Concomitant]
     Active Substance: ENOXAPARIN
     Dates: start: 20210112
  6. PANTOPRAZOLE [Concomitant]
     Active Substance: PANTOPRAZOLE
     Dates: start: 20201226
  7. AZELASTINE. [Concomitant]
     Active Substance: AZELASTINE HYDROCHLORIDE
     Dates: start: 20200810
  8. AMLODIPINE [Concomitant]
     Active Substance: AMLODIPINE BESYLATE
     Dates: start: 20201226
  9. MELATONIN [Concomitant]
     Active Substance: MELATONIN
     Dates: start: 20210112

REACTIONS (5)
  - Chills [None]
  - Tremor [None]
  - Hypoxia [None]
  - Acute respiratory failure [None]
  - Pneumonia viral [None]

NARRATIVE: CASE EVENT DATE: 20210112
